FAERS Safety Report 7263325-0 (Version None)
Quarter: 2011Q1

REPORT INFORMATION
  Report Type: 
  Country: None (occurrence: None)
  Receive Date: 20110130
  Receipt Date: 20100929
  Transmission Date: 20110831
  Serious: No
  Sender: FDA-Public Use
  Company Number: US-ABBOTT-10P-163-0676033-00

PATIENT
  Sex: Female
  Weight: 66.738 kg

DRUGS (10)
  1. GABAPENTIN [Concomitant]
     Indication: PAIN
  2. METFORMIN [Concomitant]
     Indication: DIABETES MELLITUS
  3. PREDNISONE [Concomitant]
     Indication: RHEUMATOID ARTHRITIS
  4. HYDROCODONE [Concomitant]
     Indication: PAIN
  5. ZOLPIDEM [Concomitant]
     Indication: INSOMNIA
  6. LOVASTATIN [Concomitant]
     Indication: BLOOD CHOLESTEROL INCREASED
  7. HUMIRA [Suspect]
     Indication: RHEUMATOID ARTHRITIS
     Dates: start: 20040101
  8. OMEPRAZOLE [Concomitant]
     Indication: DYSPEPSIA
  9. VALTREX [Concomitant]
     Indication: HERPES ZOSTER
  10. LISINOPRIL [Concomitant]
     Indication: HYPERTENSION

REACTIONS (3)
  - RHINORRHOEA [None]
  - PRODUCTIVE COUGH [None]
  - DYSPHONIA [None]
